FAERS Safety Report 4802489-2 (Version None)
Quarter: 2005Q4

REPORT INFORMATION
  Report Type: 
  Country: None (occurrence: None)
  Receive Date: 20051014
  Receipt Date: 20041202
  Transmission Date: 20060501
  Serious: Yes (Hospitalization, Other)
  Sender: FDA-Public Use
  Company Number: 2004104619

PATIENT

DRUGS (1)
  1. NEURONTIN [Suspect]
     Indication: MENTAL DISORDER
     Dosage: 8000 MG

REACTIONS (1)
  - CONVULSION [None]
